FAERS Safety Report 12654438 (Version 1)
Quarter: 2016Q3

REPORT INFORMATION
  Report Type: Spontaneous
  Country: US (occurrence: None)
  Receive Date: 20160815
  Receipt Date: 20160815
  Transmission Date: 20161109
  Serious: Yes (Other)
  Sender: FDA-Public Use
  Company Number: None

PATIENT
  Age: 69 Year
  Sex: Female
  Weight: 89.36 kg

DRUGS (5)
  1. PROBIOTIC [Concomitant]
     Active Substance: PROBIOTICS NOS
  2. TUMERIC [Concomitant]
     Active Substance: TURMERIC
  3. BABY ASPIRIN [Concomitant]
     Active Substance: ASPIRIN
  4. VITAMIN D [Concomitant]
     Active Substance: CHOLECALCIFEROL
  5. ATORVASTATIN 10 MG, 10 MG MYLAN [Suspect]
     Active Substance: ATORVASTATIN
     Indication: LOW DENSITY LIPOPROTEIN INCREASED
     Route: 048
     Dates: start: 20151015, end: 20160810

REACTIONS (2)
  - Gait disturbance [None]
  - Muscle spasms [None]

NARRATIVE: CASE EVENT DATE: 20160810
